FAERS Safety Report 11560372 (Version 1)
Quarter: 2015Q3

REPORT INFORMATION
  Report Type: Spontaneous
  Country: FR (occurrence: FR)
  Receive Date: 20150928
  Receipt Date: 20150928
  Transmission Date: 20151125
  Serious: Yes (Hospitalization)
  Sender: FDA-Public Use
  Company Number: FR-PFIZER INC-2015316618

PATIENT
  Age: 87 Year
  Sex: Male
  Weight: 97 kg

DRUGS (17)
  1. INIPOMP [Suspect]
     Active Substance: PANTOPRAZOLE SODIUM
     Dosage: 20 MG, 1X/DAY
     Route: 048
     Dates: end: 20150615
  2. EXELON [Concomitant]
     Active Substance: RIVASTIGMINE TARTRATE
     Dosage: 4.6 MG, 1X/DAY
     Route: 062
     Dates: start: 20091105
  3. CALCIDOSE VITAMINE D [Concomitant]
     Active Substance: CALCIUM\CHOLECALCIFEROL
     Dosage: 1 DF, 1X/DAY
     Route: 048
  4. CITALOPRAM [Concomitant]
     Active Substance: CITALOPRAM HYDROBROMIDE
     Dosage: 10 MG, 1X/DAY
     Route: 048
     Dates: end: 20150610
  5. SOLUPRED /00016201/ [Concomitant]
     Active Substance: PREDNISOLONE
     Indication: ASTHMA
     Dosage: 5 MG, AS NEEDED
     Route: 048
  6. SERETIDE [Concomitant]
     Active Substance: FLUTICASONE FUROATE\SALMETEROL XINAFOATE
     Dosage: 1 DF, 2X/DAY
     Route: 055
     Dates: end: 20150615
  7. LASILIX /00032601/ [Suspect]
     Active Substance: FUROSEMIDE
     Dosage: 40 MG, 1X/DAY
     Route: 048
     Dates: end: 20150615
  8. FINASTERIDE ARROW [Concomitant]
     Dosage: 5 MG, 1X/DAY
     Route: 048
  9. HEMIGOXINE NATIVELLE [Concomitant]
     Active Substance: DIGOXIN
     Dosage: 250 MG, 1X/DAY
     Route: 048
  10. SERESTA [Concomitant]
     Active Substance: OXAZEPAM
     Dosage: 10 MG, 1X/DAY
     Route: 048
  11. MINISINTROM [Concomitant]
     Active Substance: ACENOCOUMAROL
     Dosage: 2 MG, 1X/DAY
     Route: 048
  12. BUDESONIDE ARROW [Concomitant]
     Dosage: 1 MG, 3X/DAY
     Route: 055
     Dates: end: 20150615
  13. MODOPAR [Concomitant]
     Active Substance: BENSERAZIDE HYDROCHLORIDE\LEVODOPA
     Dosage: 62.5 MG, 3X/DAY
     Route: 048
     Dates: start: 20091105
  14. EXELON [Concomitant]
     Active Substance: RIVASTIGMINE TARTRATE
     Dosage: 9.5 MG, DAILY
  15. PERINDOPRIL [Concomitant]
     Active Substance: PERINDOPRIL
     Dosage: 4 MG, 2X/DAY
     Route: 048
  16. ALDACTONE [Suspect]
     Active Substance: SPIRONOLACTONE
     Dosage: 25 MG, 1X/DAY
     Route: 048
     Dates: end: 20150615
  17. BEVITINE [Suspect]
     Active Substance: THIAMINE
     Dosage: 250 MG, 3X/DAY
     Route: 048
     Dates: end: 20150615

REACTIONS (1)
  - Hyponatraemia [Recovered/Resolved]

NARRATIVE: CASE EVENT DATE: 20150608
